FAERS Safety Report 5658391-X (Version None)
Quarter: 2008Q1

REPORT INFORMATION
  Report Type: 
  Country: None (occurrence: None)
  Receive Date: 20080310
  Receipt Date: 20070205
  Transmission Date: 20080703
  Serious: No
  Sender: FDA-Public Use
  Company Number: US-BAYER-200710407BCC

PATIENT
  Age: 80 Year
  Sex: Female
  Weight: 82 kg

DRUGS (5)
  1. ALEVE [Suspect]
     Indication: ARTHRITIS
     Route: 048
  2. THYROID TAB [Concomitant]
  3. TAMOXIFEN [Concomitant]
  4. PAXIL [Concomitant]
  5. LIBRIUM [Concomitant]

REACTIONS (1)
  - RASH [None]
